FAERS Safety Report 16177090 (Version 4)
Quarter: 2019Q3

REPORT INFORMATION
  Report Type: Report from Study
  Country: US (occurrence: US)
  Receive Date: 20190409
  Receipt Date: 20190731
  Transmission Date: 20191004
  Serious: No
  Sender: FDA-Public Use
  Company Number: PHEH2019US014987

PATIENT
  Age: 75 Year
  Sex: Female
  Weight: 74.8 kg

DRUGS (1)
  1. GLEEVEC [Suspect]
     Active Substance: IMATINIB MESYLATE
     Indication: CHRONIC MYELOID LEUKAEMIA
     Dosage: 200 MG, QD
     Route: 048
     Dates: start: 20190129

REACTIONS (4)
  - Gastrointestinal pain [Unknown]
  - Alopecia [Not Recovered/Not Resolved]
  - Abdominal discomfort [Unknown]
  - Chills [Unknown]

NARRATIVE: CASE EVENT DATE: 20190403
